FAERS Safety Report 4410923-5 (Version None)
Quarter: 2004Q3

REPORT INFORMATION
  Report Type: 
  Country: None (occurrence: None)
  Receive Date: 20040728
  Receipt Date: 20040728
  Transmission Date: 20050211
  Serious: Yes (Other)
  Sender: FDA-Public Use
  Company Number: None

PATIENT
  Age: 47 Year
  Sex: Female
  Weight: 81.1939 kg

DRUGS (1)
  1. LEXAPRO [Suspect]
     Indication: DEPRESSION
     Dosage: 1 TABLET PER DAY ORAL
     Route: 048
     Dates: start: 20040714, end: 20040724

REACTIONS (6)
  - ABNORMAL SENSATION IN EYE [None]
  - DIPLOPIA [None]
  - SCOTOMA [None]
  - VISION BLURRED [None]
  - VISUAL BRIGHTNESS [None]
  - VISUAL DISTURBANCE [None]
